FAERS Safety Report 5487229-9 (Version None)
Quarter: 2007Q3

REPORT INFORMATION
  Report Type: 
  Country: None (occurrence: None)
  Receive Date: 20070925
  Receipt Date: 20070719
  Transmission Date: 20080115
  Serious: No
  Sender: FDA-Public Use
  Company Number: 2007US001442

PATIENT
  Age: 77 Year
  Sex: Female

DRUGS (13)
  1. VESICARE [Suspect]
     Indication: URINARY INCONTINENCE
     Dosage: 10 MG, UID/QD, ORAL
     Route: 048
     Dates: start: 20070528
  2. DETROL [Concomitant]
  3. PLAVIX [Concomitant]
  4. ASPIRIN [Concomitant]
  5. TOPROL-XL [Concomitant]
  6. DIOVAN HCT [Concomitant]
  7. METFORMIN    (METFORMIN HYDROCHLORIDE) [Concomitant]
  8. GLUCOTROL [Concomitant]
  9. MULTIVTAMIN                    (VITAMINS NOS) [Concomitant]
  10. FOLIC ACID [Concomitant]
  11. CALCIUM [Concomitant]
  12. LOTENSIN [Concomitant]
  13. VITAMIN B-12 [Concomitant]

REACTIONS (1)
  - URINARY INCONTINENCE [None]
